FAERS Safety Report 5006754-8 (Version None)
Quarter: 2006Q2

REPORT INFORMATION
  Report Type: 
  Country: None (occurrence: None)
  Receive Date: 20060516
  Receipt Date: 20060503
  Transmission Date: 20061013
  Serious: Yes (Hospitalization)
  Sender: FDA-Public Use
  Company Number: 2006060417

PATIENT
  Age: 77 Year
  Sex: Male

DRUGS (2)
  1. CLINDAMYCIN HYDROCHLORIDE [Suspect]
     Indication: COLITIS ISCHAEMIC
     Dosage: 1800 MG (300 MG, 6 IN 1 D), ORAL
     Route: 048
     Dates: start: 20060302
  2. COTRIM [Suspect]
     Indication: COLITIS ISCHAEMIC
     Dosage: 6 DF ( DAILY ), ORAL
     Route: 048
     Dates: start: 20060302

REACTIONS (2)
  - ORAL INTAKE REDUCED [None]
  - RENAL FAILURE ACUTE [None]
